FAERS Safety Report 8890096 (Version 14)
Quarter: 2015Q4

REPORT INFORMATION
  Report Type: Report from Study
  Country: CA (occurrence: CA)
  Receive Date: 20121106
  Receipt Date: 20151224
  Transmission Date: 20160305
  Serious: Yes (Hospitalization, Other)
  Sender: FDA-Public Use
  Company Number: PHHY2012CA080700

PATIENT
  Age: 69 Year
  Sex: Male

DRUGS (4)
  1. SANDOSTATIN LAR DEPOT [Suspect]
     Active Substance: OCTREOTIDE ACETATE
     Indication: NEUROENDOCRINE CARCINOMA
     Dosage: 30 MG, QMO EVERY 4 WEEK
     Route: 030
     Dates: start: 20080125
  2. SANDOSTATIN LAR DEPOT [Suspect]
     Active Substance: OCTREOTIDE ACETATE
     Dosage: 20 MG, QMO EVERY 4 WEEK
     Route: 030
  3. SANDOSTATIN LAR DEPOT [Suspect]
     Active Substance: OCTREOTIDE ACETATE
     Dosage: 30 MG, QMO EVERY 4 WEEK
     Route: 030
  4. AFINITOR [Suspect]
     Active Substance: EVEROLIMUS
     Indication: METASTASES TO BONE
     Dosage: 10 MG, QD
     Route: 048
     Dates: start: 201411

REACTIONS (22)
  - Back pain [Unknown]
  - Pain [Unknown]
  - Pneumonia [Unknown]
  - Anaemia [Unknown]
  - Influenza [Unknown]
  - Constipation [Not Recovered/Not Resolved]
  - Blood pressure systolic increased [Unknown]
  - Abdominal pain upper [Unknown]
  - Oedema peripheral [Not Recovered/Not Resolved]
  - Body temperature decreased [Unknown]
  - Cellulitis [Unknown]
  - Cholelithiasis [Unknown]
  - Bone pain [Recovered/Resolved]
  - Vertebral lesion [Unknown]
  - Agitation [Unknown]
  - Heart rate decreased [Unknown]
  - Metastases to bone [Unknown]
  - Malaise [Unknown]
  - Headache [Recovered/Resolved]
  - Renal cyst [Unknown]
  - Hepatic lesion [Unknown]
  - Skin lesion [Unknown]

NARRATIVE: CASE EVENT DATE: 201305
